FAERS Safety Report 6268014-7 (Version None)
Quarter: 2009Q3

REPORT INFORMATION
  Report Type: 
  Country: None (occurrence: None)
  Receive Date: 20090706
  Receipt Date: 20090628
  Transmission Date: 20100115
  Serious: Yes (Other)
  Sender: FDA-Public Use
  Company Number: OMX-2009-00012

PATIENT
  Age: 53 Year
  Sex: Female
  Weight: 62.1428 kg

DRUGS (1)
  1. EVICEL [Suspect]
     Dates: start: 20081205

REACTIONS (4)
  - CELLULITIS [None]
  - DISEASE RECURRENCE [None]
  - LIPOMA [None]
  - SOFT TISSUE INFLAMMATION [None]
